FAERS Safety Report 19823862 (Version 1)
Quarter: 2021Q3

REPORT INFORMATION
  Report Type: Report from Study
  Country: None (occurrence: CA)
  Receive Date: 20210914
  Receipt Date: 20210914
  Transmission Date: 20211014
  Serious: Yes (Hospitalization, Other)
  Sender: FDA-Public Use
  Company Number: CA-ABBVIE-21K-028-4073602-00

PATIENT
  Sex: Male

DRUGS (1)
  1. HUMIRA [Suspect]
     Active Substance: ADALIMUMAB
     Indication: CROHN^S DISEASE
     Route: 058
     Dates: start: 20150923, end: 20210803

REACTIONS (10)
  - Hypotension [Not Recovered/Not Resolved]
  - Arthropathy [Not Recovered/Not Resolved]
  - Gout [Unknown]
  - Gangrene [Not Recovered/Not Resolved]
  - Eye pain [Unknown]
  - Ileostomy [Not Recovered/Not Resolved]
  - Renal disorder [Unknown]
  - Gait inability [Not Recovered/Not Resolved]
  - Cellulitis [Not Recovered/Not Resolved]
  - Infection [Not Recovered/Not Resolved]

NARRATIVE: CASE EVENT DATE: 2021
